FAERS Safety Report 15076303 (Version 1)
Quarter: 2018Q2

REPORT INFORMATION
  Report Type: Spontaneous
  Country: US (occurrence: US)
  Receive Date: 20180627
  Receipt Date: 20180627
  Transmission Date: 20180711
  Serious: No
  Sender: FDA-Public Use
  Company Number: US-PFIZER INC-2018258837

PATIENT
  Age: 31 Year
  Sex: Female

DRUGS (1)
  1. EUCRISA [Suspect]
     Active Substance: CRISABOROLE
     Dosage: UNK, 1X/DAY (APPLY TO AFFECTED AREAS ON FACE AND BODY)
     Route: 061

REACTIONS (2)
  - Skin burning sensation [Recovered/Resolved]
  - Off label use [Unknown]
